FAERS Safety Report 19670476 (Version 1)
Quarter: 2021Q3

REPORT INFORMATION
  Report Type: Other
  Country: IN (occurrence: IN)
  Receive Date: 20210806
  Receipt Date: 20210806
  Transmission Date: 20211014
  Serious: Yes (Other)
  Sender: FDA-Public Use
  Company Number: IN-B.BRAUN MEDICAL INC.-2114739

PATIENT
  Age: 54 Year
  Sex: Female

DRUGS (3)
  1. CEFEPIME HYDROCHLORIDE AND DEXTROSE [Suspect]
     Active Substance: CEFEPIME HYDROCHLORIDE
  2. PIPERACILLIN. [Concomitant]
     Active Substance: PIPERACILLIN SODIUM
  3. TAZOBACTAM [Concomitant]
     Active Substance: TAZOBACTAM

REACTIONS (4)
  - Myoclonus [None]
  - Depressed level of consciousness [None]
  - Disorientation [None]
  - Muscle twitching [None]
